FAERS Safety Report 15709295 (Version 1)
Quarter: 2018Q4

REPORT INFORMATION
  Report Type: Spontaneous
  Country: US (occurrence: US)
  Receive Date: 20181211
  Receipt Date: 20181211
  Transmission Date: 20190205
  Serious: Yes (Hospitalization)
  Sender: FDA-Public Use
  Company Number: US-US WORLDMEDS, LLC-USW201811-001821

PATIENT
  Sex: Female

DRUGS (16)
  1. XADAGO [Suspect]
     Active Substance: SAFINAMIDE MESYLATE
     Indication: PRODUCT USED FOR UNKNOWN INDICATION
  2. GOCOVRI [Suspect]
     Active Substance: AMANTADINE
     Indication: DYSKINESIA
     Route: 048
     Dates: start: 20171129
  3. HYDROCODONE/ IBUPROFEN [Concomitant]
  4. CARBIDOPA/ LEVODOPA [Concomitant]
     Active Substance: CARBIDOPA\LEVODOPA
     Dosage: 25-250 MG
  5. VITAMIN B12 [Concomitant]
     Active Substance: CYANOCOBALAMIN
     Indication: MEDICAL DIET
  6. MELATONIN [Concomitant]
     Active Substance: MELATONIN
     Indication: MEDICAL DIET
  7. PROAIR HFA AEROSOL [Concomitant]
  8. METOPROLOL SUCCINATE. [Concomitant]
     Active Substance: METOPROLOL SUCCINATE
  9. ASPIRIN. [Concomitant]
     Active Substance: ASPIRIN
  10. ATORVASTATIN [Concomitant]
     Active Substance: ATORVASTATIN
  11. MIRAPEX [Concomitant]
     Active Substance: PRAMIPEXOLE DIHYDROCHLORIDE
  12. MIRTAZAPINE. [Concomitant]
     Active Substance: MIRTAZAPINE
  13. CITALOPRAM [Concomitant]
     Active Substance: CITALOPRAM HYDROBROMIDE
  14. GABAPENTIN. [Concomitant]
     Active Substance: GABAPENTIN
  15. ELIQUIS [Concomitant]
     Active Substance: APIXABAN
  16. MULTIVITAMIN [Concomitant]
     Active Substance: VITAMINS

REACTIONS (2)
  - Asthenia [Not Recovered/Not Resolved]
  - Hallucination [Not Recovered/Not Resolved]
